FAERS Safety Report 9115949 (Version 1)
Quarter: 2013Q1

REPORT INFORMATION
  Report Type: Report from Study
  Country: MX (occurrence: MX)
  Receive Date: 20130225
  Receipt Date: 20130225
  Transmission Date: 20140127
  Serious: Yes (Death, Life-Threatening, Hospitalization)
  Sender: FDA-Public Use
  Company Number: MX-BRISTOL-MYERS SQUIBB COMPANY-15937808

PATIENT
  Age: 50 Year
  Sex: Male

DRUGS (4)
  1. IPILIMUMAB [Suspect]
     Indication: PROSTATE CANCER
     Dosage: 110 ML TOTAL DOSE
     Route: 042
     Dates: start: 20110707, end: 20110729
  2. PARACETAMOL [Concomitant]
     Dates: start: 20110726, end: 20110814
  3. GABAPENTIN [Concomitant]
     Dates: start: 20110726, end: 20110814
  4. OMEPRAZOLE [Concomitant]
     Dates: start: 20110726, end: 20110814

REACTIONS (2)
  - Hepatic failure [Fatal]
  - Multi-organ failure [Fatal]
